FAERS Safety Report 21558923 (Version 1)
Quarter: 2022Q4

REPORT INFORMATION
  Report Type: Spontaneous
  Country: GB (occurrence: GB)
  Receive Date: 20221107
  Receipt Date: 20221107
  Transmission Date: 20230112
  Serious: No
  Sender: FDA-Public Use
  Company Number: None

PATIENT
  Age: 29 Year
  Sex: Female
  Weight: 71 kg

DRUGS (5)
  1. COLESEVELAM HYDROCHLORIDE [Suspect]
     Active Substance: COLESEVELAM HYDROCHLORIDE
     Indication: Product used for unknown indication
     Dosage: UNK, TABLET (UNCOATED, ORAL), TAKE ONE OR TWO DAILY
     Route: 048
     Dates: start: 20220802
  2. LOPERAMIDE [Concomitant]
     Active Substance: LOPERAMIDE
     Indication: Ill-defined disorder
     Dosage: UNK, 1 TABLET, BID
     Route: 065
     Dates: start: 20220913
  3. PENICILLIN V [Concomitant]
     Active Substance: PENICILLIN V
     Indication: Ill-defined disorder
     Dosage: UNK, TAKE TWO 4 TIMES/DAY
     Dates: start: 20220719, end: 20220726
  4. TRAMADOL [Concomitant]
     Active Substance: TRAMADOL
     Indication: Ill-defined disorder
     Dosage: UNK, TAKE 1OR 2 FOUR TIMES DAILY WHEN REQUIRED
     Route: 065
     Dates: start: 20220819, end: 20220823
  5. TRANEXAMIC ACID [Concomitant]
     Active Substance: TRANEXAMIC ACID
     Indication: Ill-defined disorder
     Dosage: UNK, (2 TABLETS THREE TIMES DAILY AS LONG AS NEEDED F...)
     Route: 065
     Dates: start: 20220719, end: 20220729

REACTIONS (2)
  - Abdominal distension [Recovered/Resolved]
  - Abdominal pain [Unknown]
